FAERS Safety Report 7689270-4 (Version None)
Quarter: 2011Q3

REPORT INFORMATION
  Report Type: 
  Country: None (occurrence: None)
  Receive Date: 20110817
  Receipt Date: 20110809
  Transmission Date: 20111222
  Serious: Yes (Hospitalization, Other)
  Sender: FDA-Public Use
  Company Number: JP-CEPHALON-2011002594

PATIENT
  Age: 56 Year
  Sex: Male

DRUGS (7)
  1. FAMOTIDINE [Concomitant]
  2. BENDAMUSTINE HCL [Suspect]
     Indication: B-CELL LYMPHOMA
     Route: 042
     Dates: start: 20110421, end: 20110715
  3. ALLOPURINOL [Concomitant]
  4. DEXAMETHASONE [Concomitant]
     Dates: start: 20110421, end: 20110715
  5. ASPIRIN [Concomitant]
  6. DEXAMETHASONE SODIUM PHOSPHATE [Concomitant]
     Dates: start: 20110421, end: 20110715
  7. SULFAMETHOXAZOLE AND TRIMETHOPRIM [Concomitant]

REACTIONS (3)
  - NEUTROPHIL COUNT DECREASED [None]
  - PLATELET COUNT DECREASED [None]
  - LARGE INTESTINE PERFORATION [None]
